FAERS Safety Report 8788642 (Version 1)
Quarter: 2012Q4

REPORT INFORMATION
  Report Type: 
  Country: US (occurrence: US)
  Receive Date: 20120914
  Receipt Date: 20120914
  Transmission Date: 20130627
  Serious: Yes (Death, Other)
  Sender: FDA-Public Use
  Company Number: PHEH2012US017807

PATIENT
  Age: 76 Year
  Sex: Female
  Weight: 44.5 kg

DRUGS (17)
  1. RECLAST [Suspect]
     Indication: OSTEOPOROSIS
     Dosage: 5 mg, yearly
     Route: 042
     Dates: start: 20110318
  2. CELEBREX [Suspect]
     Indication: RHEUMATOID ARTHRITIS
     Dosage: 200 mg, daily
     Route: 048
     Dates: start: 20110120, end: 20110424
  3. METHOTREXATE [Concomitant]
     Indication: RHEUMATOID ARTHRITIS
     Dosage: 25 mg, weekly
     Dates: start: 2001, end: 20110424
  4. OXYCODONE [Concomitant]
     Indication: RHEUMATOID ARTHRITIS
     Dosage: UNK UKN, UNK
     Dates: start: 2010
  5. FENTANYL [Concomitant]
     Dosage: UNK UKN, UNK
     Route: 062
     Dates: start: 2011
  6. PRAVASTATIN [Concomitant]
  7. ACYCLOVIR [Concomitant]
  8. FOLIC ACID [Concomitant]
  9. LISINOPRIL [Concomitant]
  10. CALCIUM CARBONATE [Concomitant]
  11. ASPIRINE [Concomitant]
     Dosage: 325 mg, UNK
  12. FUROSEMIDE [Concomitant]
  13. PREDNISONE [Concomitant]
     Dosage: 5 mg, UNK
  14. ATENOLOL [Concomitant]
  15. METHOCARBAMOL [Concomitant]
  16. CLOPIDOGREL [Concomitant]
  17. LORATADINE [Concomitant]

REACTIONS (5)
  - Renal failure [Fatal]
  - Blood creatinine increased [Fatal]
  - White blood cell count decreased [Unknown]
  - Blood pressure immeasurable [None]
  - Pulse pressure decreased [None]
